FAERS Safety Report 9054805 (Version 2)
Quarter: 2013Q1

REPORT INFORMATION
  Report Type: Spontaneous
  Country: RU (occurrence: RU)
  Receive Date: 20130208
  Receipt Date: 20130226
  Transmission Date: 20140127
  Serious: Yes (Disabling)
  Sender: FDA-Public Use
  Company Number: PHHY2012RU124260

PATIENT
  Age: 53 Year
  Sex: Female

DRUGS (2)
  1. MIACALCIC [Suspect]
     Indication: OSTEOPENIA
     Dosage: 200 ME (IU), TWICE DAILY (2)
     Route: 045
  2. CALCITONIN [Concomitant]
     Dosage: UNK UKN, UNK

REACTIONS (1)
  - Bone pain [Recovering/Resolving]
